FAERS Safety Report 13095037 (Version 2)
Quarter: 2017Q1

REPORT INFORMATION
  Report Type: Report from Study
  Country: US (occurrence: US)
  Receive Date: 20170106
  Receipt Date: 20170216
  Transmission Date: 20170428
  Serious: Yes (Other)
  Sender: FDA-Public Use
  Company Number: US-JAZZ-2016-US-023995

PATIENT
  Sex: Male

DRUGS (10)
  1. VYVANSE [Concomitant]
     Active Substance: LISDEXAMFETAMINE DIMESYLATE
  2. XYREM [Suspect]
     Active Substance: SODIUM OXYBATE
     Indication: INSOMNIA
     Dosage: 2.25 G, BID
     Route: 048
     Dates: start: 201402, end: 2014
  3. XYREM [Suspect]
     Active Substance: SODIUM OXYBATE
     Indication: NARCOLEPSY
     Dosage: DOSE ADJUSTMENT
     Route: 048
     Dates: start: 201403, end: 2014
  4. ARMOUR THYROID [Concomitant]
     Active Substance: THYROID, PORCINE
  5. XYREM [Suspect]
     Active Substance: SODIUM OXYBATE
     Dosage: 6.5 G, BID
     Route: 048
     Dates: start: 201407
  6. ZOLPIDEM TARTRATE. [Concomitant]
     Active Substance: ZOLPIDEM TARTRATE
  7. XYREM [Suspect]
     Active Substance: SODIUM OXYBATE
     Dosage: UNK
     Route: 048
     Dates: start: 2014, end: 2014
  8. XYREM [Suspect]
     Active Substance: SODIUM OXYBATE
     Dosage: 6.5G, BID
     Route: 048
     Dates: start: 2014, end: 2016
  9. ADDERALL [Concomitant]
     Active Substance: AMPHETAMINE ASPARTATE\AMPHETAMINE SULFATE\DEXTROAMPHETAMINE SACCHARATE\DEXTROAMPHETAMINE SULFATE
  10. CORTEF [Concomitant]
     Active Substance: HYDROCORTISONE

REACTIONS (12)
  - Memory impairment [Unknown]
  - Aphasia [Unknown]
  - Stress [Unknown]
  - Frustration tolerance decreased [Unknown]
  - Weight decreased [Unknown]
  - Sleep disorder [Unknown]
  - Unevaluable event [Unknown]
  - Anxiety [Unknown]
  - Fatigue [Unknown]
  - Agitation [Unknown]
  - Narcolepsy [Unknown]
  - Depression [Unknown]
